FAERS Safety Report 17765092 (Version 1)
Quarter: 2020Q2

REPORT INFORMATION
  Report Type: Spontaneous
  Country: US (occurrence: US)
  Receive Date: 20200511
  Receipt Date: 20200511
  Transmission Date: 20200714
  Serious: Yes (Hospitalization)
  Sender: FDA-Public Use
  Company Number: US-EMCURE PHARMACEUTICALS LTD-2020-EPL-000553

PATIENT
  Age: 61 Year
  Sex: Female

DRUGS (26)
  1. CLINDAMYCIN. [Concomitant]
     Active Substance: CLINDAMYCIN
     Indication: ANTIBIOTIC THERAPY
  2. CLINDAMYCIN. [Concomitant]
     Active Substance: CLINDAMYCIN
     Indication: MEDICAL DEVICE SITE JOINT INFECTION
  3. TOBRAMYCIN. [Concomitant]
     Active Substance: TOBRAMYCIN
     Indication: ANTIBIOTIC THERAPY
     Route: 065
  4. TOBRAMYCIN. [Concomitant]
     Active Substance: TOBRAMYCIN
     Indication: MEDICAL DEVICE SITE JOINT INFECTION
     Dosage: WITH VANCOMYCIN
     Route: 014
  5. CEFTRIAXONE. [Concomitant]
     Active Substance: CEFTRIAXONE
     Indication: ANTIBIOTIC THERAPY
  6. METRONIDAZOLE. [Concomitant]
     Active Substance: METRONIDAZOLE
     Indication: MEDICAL DEVICE SITE JOINT INFECTION
  7. VANCOMYCIN HYDROCHLORIDE. [Suspect]
     Active Substance: VANCOMYCIN HYDROCHLORIDE
     Indication: ANTIBIOTIC THERAPY
     Dosage: UNK
     Route: 042
  8. VANCOMYCIN HYDROCHLORIDE. [Suspect]
     Active Substance: VANCOMYCIN HYDROCHLORIDE
     Indication: MEDICAL DEVICE SITE JOINT INFECTION
     Dosage: WITH GENTAMICIN AS WELL AS TOBRAMYCIN
     Route: 014
  9. DOXYCYCLINE. [Concomitant]
     Active Substance: DOXYCYCLINE
     Indication: ANTIBIOTIC THERAPY
  10. DOXYCYCLINE. [Concomitant]
     Active Substance: DOXYCYCLINE
     Indication: MEDICAL DEVICE SITE JOINT INFECTION
  11. CEFAZOLIN [Concomitant]
     Active Substance: CEFAZOLIN
     Indication: MEDICAL DEVICE SITE JOINT INFECTION
  12. LINEZOLID. [Concomitant]
     Active Substance: LINEZOLID
     Indication: MEDICAL DEVICE SITE JOINT INFECTION
  13. LEVAQUIN [Concomitant]
     Active Substance: LEVOFLOXACIN
     Indication: ANTIBIOTIC THERAPY
  14. GENTAMICIN. [Concomitant]
     Active Substance: GENTAMICIN
     Indication: ANTIBIOTIC THERAPY
     Route: 014
  15. GENTAMICIN. [Concomitant]
     Active Substance: GENTAMICIN
     Indication: MEDICAL DEVICE SITE JOINT INFECTION
  16. CEFOTAXIME [Concomitant]
     Active Substance: CEFOTAXIME SODIUM
     Indication: ANTIBIOTIC THERAPY
  17. CEFOTAXIME [Concomitant]
     Active Substance: CEFOTAXIME SODIUM
     Indication: MEDICAL DEVICE SITE JOINT INFECTION
  18. PIPERACILLIN AND TAZOBACTAM [Concomitant]
     Active Substance: PIPERACILLIN SODIUM\TAZOBACTAM SODIUM
     Indication: ANTIBIOTIC THERAPY
  19. CEFAZOLIN [Concomitant]
     Active Substance: CEFAZOLIN
     Indication: ANTIBIOTIC THERAPY
  20. CEFTRIAXONE. [Concomitant]
     Active Substance: CEFTRIAXONE
     Indication: MEDICAL DEVICE SITE JOINT INFECTION
  21. CEPHALEXIN. [Concomitant]
     Active Substance: CEPHALEXIN
     Indication: MEDICAL DEVICE SITE JOINT INFECTION
  22. METRONIDAZOLE. [Concomitant]
     Active Substance: METRONIDAZOLE
     Indication: ANTIBIOTIC THERAPY
  23. LEVAQUIN [Concomitant]
     Active Substance: LEVOFLOXACIN
     Indication: MEDICAL DEVICE SITE JOINT INFECTION
  24. PIPERACILLIN AND TAZOBACTAM [Concomitant]
     Active Substance: PIPERACILLIN SODIUM\TAZOBACTAM SODIUM
     Indication: MEDICAL DEVICE SITE JOINT INFECTION
  25. LINEZOLID. [Concomitant]
     Active Substance: LINEZOLID
     Indication: ANTIBIOTIC THERAPY
  26. CEPHALEXIN. [Concomitant]
     Active Substance: CEPHALEXIN
     Indication: ANTIBIOTIC THERAPY

REACTIONS (1)
  - Haemolytic anaemia [Recovered/Resolved]
